FAERS Safety Report 13472486 (Version 3)
Quarter: 2017Q2

REPORT INFORMATION
  Report Type: Report from Study
  Country: US (occurrence: US)
  Receive Date: 20170424
  Receipt Date: 20170510
  Transmission Date: 20170830
  Serious: Yes (Other)
  Sender: FDA-Public Use
  Company Number: US-PFIZER INC-2017026718

PATIENT
  Age: 88 Year
  Sex: Female

DRUGS (2)
  1. FASLODEX [Suspect]
     Active Substance: FULVESTRANT
     Dosage: UNK
  2. IBRANCE [Suspect]
     Active Substance: PALBOCICLIB
     Indication: BREAST CANCER
     Dosage: 75 MG, CYCLIC (ONCE DAILY FOR 21 DAYS IN A) (DAILY/ 3 WEEKS ON/ 1 WEEK OFF)
     Route: 048
     Dates: start: 20170116, end: 20170416

REACTIONS (5)
  - Nausea [Unknown]
  - Fatigue [Not Recovered/Not Resolved]
  - Hypersomnia [Unknown]
  - Feeling abnormal [Unknown]
  - Loss of consciousness [Unknown]
